FAERS Safety Report 6247799-X (Version None)
Quarter: 2009Q2

REPORT INFORMATION
  Report Type: 
  Country: None (occurrence: None)
  Receive Date: 20090626
  Receipt Date: 20090617
  Transmission Date: 20091009
  Serious: Yes (Other)
  Sender: FDA-Public Use
  Company Number: PHHY2009BR24838

PATIENT
  Age: 45 Year
  Sex: Male
  Weight: 110 kg

DRUGS (3)
  1. VOLTAREN [Suspect]
     Indication: BACK PAIN
     Dosage: 75 MG, BID
     Route: 048
  2. VOLTAREN [Suspect]
     Dosage: 3 OR 4 TAB/DAY
     Route: 048
  3. VOLTAREN [Suspect]
     Dosage: 75 MG, BID
     Route: 048
     Dates: start: 20090518

REACTIONS (8)
  - ANAEMIA [None]
  - ASTHENIA [None]
  - DIZZINESS [None]
  - EYELID DISORDER [None]
  - FATIGUE [None]
  - PAIN [None]
  - PALLOR [None]
  - YELLOW SKIN [None]
